FAERS Safety Report 4874296-6 (Version None)
Quarter: 2006Q1

REPORT INFORMATION
  Report Type: 
  Country: None (occurrence: None)
  Receive Date: 20060106
  Receipt Date: 20051005
  Transmission Date: 20060701
  Serious: Yes (Hospitalization)
  Sender: FDA-Public Use
  Company Number: US-MERCK-0510USA04514

PATIENT
  Age: 57 Year
  Sex: Male
  Weight: 118 kg

DRUGS (18)
  1. LIPITOR [Concomitant]
     Route: 048
  2. CLARINEX [Concomitant]
     Route: 048
  3. [COMPOSITION UNSPECIFIED] [Concomitant]
     Route: 065
  4. DIPYRIDAMOLE [Concomitant]
     Route: 048
  5. VIOXX [Suspect]
     Indication: ARTHRITIS
     Route: 048
     Dates: start: 20000501
  6. FLONASE [Concomitant]
     Route: 065
  7. TENORMIN [Concomitant]
     Route: 065
  8. PROZAC [Concomitant]
     Route: 048
  9. LASIX [Concomitant]
     Route: 048
  10. COUMADIN [Concomitant]
     Route: 048
  11. COUMADIN [Concomitant]
     Route: 048
  12. COUMADIN [Concomitant]
     Route: 048
  13. ZESTRIL [Concomitant]
     Route: 048
  14. FLOMAX (MORNIFLUMATE) [Concomitant]
     Route: 048
  15. SYNTHROID [Concomitant]
     Route: 048
  16. SYNTHROID [Concomitant]
     Route: 048
  17. AVANDIA [Concomitant]
     Route: 048
  18. LIPITOR [Concomitant]
     Route: 048

REACTIONS (2)
  - MYOCARDIAL INFARCTION [None]
  - PROSTATE CANCER [None]
